FAERS Safety Report 11861042 (Version 3)
Quarter: 2016Q3

REPORT INFORMATION
  Report Type: Spontaneous
  Country: DE (occurrence: DE)
  Receive Date: 20151222
  Receipt Date: 20160826
  Transmission Date: 20161109
  Serious: Yes (Other)
  Sender: FDA-Public Use
  Company Number: DE-SA-2015SA186171

PATIENT
  Age: 60 Year
  Sex: Female

DRUGS (22)
  1. TOUJEO [Suspect]
     Active Substance: INSULIN GLARGINE
     Indication: DIABETES MELLITUS
     Route: 058
     Dates: start: 20151109, end: 20151109
  2. SOLOSTAR [Concomitant]
     Active Substance: DEVICE
     Indication: DIABETES MELLITUS
     Dates: start: 201511
  3. FUROSEMIDE. [Concomitant]
     Active Substance: FUROSEMIDE
  4. INNOHEP [Concomitant]
     Active Substance: TINZAPARIN SODIUM
  5. LYRICA [Concomitant]
     Active Substance: PREGABALIN
  6. TOUJEO [Suspect]
     Active Substance: INSULIN GLARGINE
     Indication: DIABETES MELLITUS
     Route: 058
  7. PALLADON [Concomitant]
     Active Substance: HYDROMORPHONE
  8. NOVALGIN [Concomitant]
     Active Substance: METAMIZOLE SODIUM
  9. NOVORAPID [Concomitant]
     Active Substance: INSULIN ASPART
     Dosage: BASED ON BLOOD GLUCOSE
  10. METFORMIN [Concomitant]
     Active Substance: METFORMIN HYDROCHLORIDE
     Indication: TYPE 2 DIABETES MELLITUS
     Route: 048
     Dates: end: 201511
  11. MORPHINE SULFATE. [Concomitant]
     Active Substance: MORPHINE SULFATE
  12. ALDACTONE [Concomitant]
     Active Substance: SPIRONOLACTONE
  13. XIPAMIDE [Concomitant]
     Active Substance: XIPAMIDE
  14. L-THYROXIN [Concomitant]
     Active Substance: LEVOTHYROXINE SODIUM
  15. OXAZEPAM. [Concomitant]
     Active Substance: OXAZEPAM
  16. EUGLUCAN [Concomitant]
     Indication: TYPE 2 DIABETES MELLITUS
     Route: 048
     Dates: end: 201511
  17. ADENURIC [Concomitant]
     Active Substance: FEBUXOSTAT
  18. AMLODIPIN [Concomitant]
     Active Substance: AMLODIPINE BESYLATE
  19. DEXAMETHASONE. [Concomitant]
     Active Substance: DEXAMETHASONE
  20. TEPILTA [Concomitant]
     Active Substance: ALUMINUM HYDROXIDE\MAGNESIUM OXIDE\OXETHAZAINE
     Dosage: SACHET
  21. METOHEXAL [Concomitant]
     Active Substance: METOPROLOL SUCCINATE
  22. VIGANTOLETTEN [Concomitant]
     Active Substance: CHOLECALCIFEROL

REACTIONS (4)
  - Rash generalised [Recovered/Resolved]
  - Ascites [Unknown]
  - Lip swelling [Recovered/Resolved]
  - Dysphagia [Recovered/Resolved]

NARRATIVE: CASE EVENT DATE: 201511
